FAERS Safety Report 4704074-X (Version None)
Quarter: 2005Q2

REPORT INFORMATION
  Report Type: 
  Country: None (occurrence: None)
  Receive Date: 20050629
  Receipt Date: 20050614
  Transmission Date: 20051028
  Serious: No
  Sender: FDA-Public Use
  Company Number: 11607

PATIENT
  Age: 25 Year
  Sex: Female

DRUGS (7)
  1. DOXORUBICIN HCL [Suspect]
     Indication: NEOPLASM MALIGNANT
     Dosage: 105 MG/M2 TOTAL
  2. ETOPOSIDE [Suspect]
     Indication: NEOPLASM MALIGNANT
     Dosage: 1500 MG/M2 TOTAL
  3. CARBOPLATIN [Suspect]
     Indication: NEOPLASM MALIGNANT
     Dosage: 800 MG/M2 TOTAL
  4. CYCLOPHOSPHAMIDE [Suspect]
     Indication: NEOPLASM MALIGNANT
     Dosage: 10500 MG/M2 TOTAL
  5. IFOSFAMIDE [Suspect]
     Indication: NEOPLASM MALIGNANT
     Dosage: 18000 MG/M2 TOTAL
  6. BUSULFAN [Suspect]
     Indication: NEOPLASM MALIGNANT
     Dosage: 600 MG/M2 TOTAL
  7. MELPHALAN [Suspect]
     Indication: NEOPLASM MALIGNANT
     Dosage: 140 MG/M2 TOTAL

REACTIONS (1)
  - ACUTE PROMYELOCYTIC LEUKAEMIA [None]
